FAERS Safety Report 7717277-7 (Version None)
Quarter: 2011Q3

REPORT INFORMATION
  Report Type: 
  Country: None (occurrence: None)
  Receive Date: 20110830
  Receipt Date: 20110819
  Transmission Date: 20111222
  Serious: Yes (Other)
  Sender: FDA-Public Use
  Company Number: US-JNJFOC-20110707222

PATIENT
  Sex: Male
  Weight: 71.67 kg

DRUGS (15)
  1. REMICADE [Suspect]
     Route: 042
     Dates: start: 20110427
  2. ACETAMINOPHEN [Concomitant]
     Route: 065
  3. REMICADE [Suspect]
     Route: 042
     Dates: start: 20110202
  4. PROTONIX [Concomitant]
     Route: 065
  5. CYMBALTA [Concomitant]
     Route: 065
  6. WARFARIN SODIUM [Concomitant]
     Route: 065
  7. INSULIN [Concomitant]
     Route: 065
  8. ERYTHROMYCIN [Concomitant]
     Route: 065
  9. BENICAR [Concomitant]
     Route: 065
  10. DILAUDID [Concomitant]
     Route: 065
  11. REMICADE [Suspect]
     Indication: HIDRADENITIS
     Route: 042
  12. REMICADE [Suspect]
     Route: 042
     Dates: start: 20110316
  13. ZYLOPRIM [Concomitant]
     Route: 065
  14. PERCOCET [Concomitant]
     Route: 065
  15. ZOFRAN [Concomitant]
     Route: 065

REACTIONS (6)
  - INSOMNIA [None]
  - WEIGHT DECREASED [None]
  - INFLAMMATORY BOWEL DISEASE [None]
  - HYPOTENSION [None]
  - CELLULITIS [None]
  - BACK PAIN [None]
